FAERS Safety Report 9006460 (Version 4)
Quarter: 2013Q3

REPORT INFORMATION
  Report Type: Spontaneous
  Country: GB (occurrence: None)
  Receive Date: 20121227
  Receipt Date: 20130808
  Transmission Date: 20140515
  Serious: Yes (Other)
  Sender: FDA-Public Use
  Company Number: 2012-01792

PATIENT
  Age: 55 Year
  Sex: Male

DRUGS (6)
  1. SIMVASTATIN [Suspect]
     Indication: BLOOD CHOLESTEROL INCREASED
     Route: 048
     Dates: start: 20110613, end: 20120925
  2. LOSARTAN (UNKNOWN) (LOSARTAN) [Suspect]
     Indication: BLOOD PRESSURE
     Route: 048
  3. AMLODIPINE [Suspect]
     Indication: HYPERTENSION
     Dosage: 1O MG
     Route: 048
  4. RAMIPRIL [Suspect]
     Indication: HYPERTENSION
     Route: 048
  5. LERCANIDIPINE [Suspect]
     Indication: BLOOD PRESSURE
     Dosage: 5MG AND 10 MG
     Route: 048
  6. PRAVASTATIN (UNKNOWN) [Suspect]
     Indication: BLOOD CHOLESTEROL INCREASED

REACTIONS (18)
  - Product quality issue [None]
  - Drug interaction [None]
  - Confusional state [None]
  - Dysstasia [None]
  - Depressed mood [None]
  - Blood pressure increased [None]
  - Throat irritation [None]
  - Myalgia [None]
  - Mental impairment [None]
  - Osteoarthritis [None]
  - Dyspnoea [None]
  - Fatigue [None]
  - Gait disturbance [None]
  - Feeling abnormal [None]
  - Nightmare [None]
  - Stress [None]
  - Depression [None]
  - Polymyositis [None]
